FAERS Safety Report 21931418 (Version 1)
Quarter: 2023Q1

REPORT INFORMATION
  Report Type: Spontaneous
  Country: US (occurrence: None)
  Receive Date: 20230130
  Receipt Date: 20230130
  Transmission Date: 20230418
  Serious: Yes (Other)
  Sender: FDA-Public Use
  Company Number: None

PATIENT
  Age: 31 Year
  Sex: Female
  Weight: 58.5 kg

DRUGS (2)
  1. MESALAMINE [Suspect]
     Active Substance: MESALAMINE
     Indication: Colitis ulcerative
     Dosage: OTHER QUANTITY : 4 CAPSULE(S);?FREQUENCY : DAILY;?
     Route: 048
     Dates: start: 20230118, end: 20230127
  2. Lo-Lestrin FE (birth control) [Concomitant]

REACTIONS (9)
  - Nausea [None]
  - Diarrhoea [None]
  - Decreased appetite [None]
  - Decreased activity [None]
  - Arthralgia [None]
  - Asthenia [None]
  - Retching [None]
  - Vomiting [None]
  - Product substitution issue [None]

NARRATIVE: CASE EVENT DATE: 20230119
